FAERS Safety Report 11799518 (Version 2)
Quarter: 2015Q4

REPORT INFORMATION
  Report Type: Report from Study
  Country: US (occurrence: US)
  Receive Date: 20151203
  Receipt Date: 20151223
  Transmission Date: 20160305
  Serious: Yes (Death)
  Sender: FDA-Public Use
  Company Number: US-AMGEN-USASL2015104741

PATIENT
  Age: 51 Year
  Sex: Female

DRUGS (1)
  1. BLINCYTO [Suspect]
     Active Substance: BLINATUMOMAB
     Indication: ACUTE LYMPHOCYTIC LEUKAEMIA
     Dosage: UNK
     Route: 065
     Dates: start: 20150916

REACTIONS (6)
  - Hepatic enzyme increased [Unknown]
  - Therapeutic response unexpected [Unknown]
  - Abdominal pain [Unknown]
  - Fatigue [Unknown]
  - Death [Fatal]
  - Feeling abnormal [Unknown]
